FAERS Safety Report 25942750 (Version 1)
Quarter: 2025Q4

REPORT INFORMATION
  Report Type: Spontaneous
  Country: JP (occurrence: JP)
  Receive Date: 20251021
  Receipt Date: 20251021
  Transmission Date: 20260117
  Serious: Yes (Other)
  Sender: JOURNEY MEDICAL CORPORATION
  Company Number: JP-JOURNEY MEDICAL CORPORATION-2025JNY00178

PATIENT
  Age: 22 Year
  Sex: Female

DRUGS (1)
  1. MINOCYCLINE [Suspect]
     Active Substance: MINOCYCLINE HYDROCHLORIDE
     Indication: Prurigo pigmentosa
     Route: 048

REACTIONS (2)
  - Neutropenia [Recovering/Resolving]
  - Liver injury [Recovering/Resolving]
